FAERS Safety Report 8098891-9 (Version None)
Quarter: 2012Q1

REPORT INFORMATION
  Report Type: 
  Country: None (occurrence: None)
  Receive Date: 20120129
  Receipt Date: 20111028
  Transmission Date: 20120608
  Serious: No
  Sender: FDA-Public Use
  Company Number: US-ABBOTT-11P-163-0857845-00

PATIENT
  Age: 54 Year
  Sex: Female

DRUGS (9)
  1. HUMIRA [Suspect]
     Indication: PSORIATIC ARTHROPATHY
     Dates: end: 20110501
  2. MELOXICAM [Concomitant]
     Indication: PAIN
     Dosage: 7.5 MG - PER DAY
  3. ASPIRIN [Concomitant]
     Indication: CARDIAC DISORDER
  4. NEXIUM [Concomitant]
     Indication: GASTROOESOPHAGEAL REFLUX DISEASE
  5. ASPIRIN [Concomitant]
     Indication: PROPHYLAXIS
     Dosage: EVERY DAY
  6. METFORMIN HCL [Concomitant]
     Indication: GLUCOSE TOLERANCE IMPAIRED
     Dosage: 1000 MG - ONE TABLET DAILY
  7. SYNTHROID [Concomitant]
     Indication: HYPOTHYROIDISM
     Dosage: PER DAY
  8. EFFEXOR [Concomitant]
     Indication: HORMONE LEVEL ABNORMAL
  9. SIMVASTATIN [Concomitant]
     Indication: BLOOD CHOLESTEROL INCREASED
     Dosage: 20MG - PER DAY

REACTIONS (6)
  - ARTHRALGIA [None]
  - JOINT SWELLING [None]
  - VITAMIN D DECREASED [None]
  - FATIGUE [None]
  - PAIN [None]
  - PSORIATIC ARTHROPATHY [None]
